FAERS Safety Report 4697193-8 (Version None)
Quarter: 2005Q2

REPORT INFORMATION
  Report Type: 
  Country: None (occurrence: None)
  Receive Date: 20050621
  Receipt Date: 20050621
  Transmission Date: 20051028
  Serious: No
  Sender: FDA-Public Use
  Company Number: None

PATIENT
  Age: 74 Year
  Sex: Female
  Weight: 68.9467 kg

DRUGS (5)
  1. LIPITOR [Suspect]
     Indication: BLOOD CHOLESTEROL INCREASED
     Dosage: 1 TABLET   DAILY   ORAL
     Route: 048
  2. LEVOXYL [Concomitant]
  3. DIOVAN [Concomitant]
  4. GLUCOSAMINE [Concomitant]
  5. ASCORBIC ACID [Concomitant]

REACTIONS (1)
  - MYALGIA [None]
